FAERS Safety Report 24459628 (Version 1)
Quarter: 2024Q4

REPORT INFORMATION
  Report Type: Report from Study
  Country: US (occurrence: US)
  Receive Date: 20241018
  Receipt Date: 20241018
  Transmission Date: 20250115
  Serious: No
  Sender: ROCHE
  Company Number: US-ROCHE-3544670

PATIENT
  Age: 74 Year
  Sex: Male
  Weight: 104.01 kg

DRUGS (10)
  1. RITUXAN [Suspect]
     Active Substance: RITUXIMAB
     Indication: Product used for unknown indication
     Dosage: PATIENT STARTED S/P BR X 6 CYCLES SEP-2014- FEB 2015, FOLLOWED BY MAINTENANCE RITUXAN FEB 2015-FEB 2
     Route: 065
  2. AMLODIPINE BESYLATE [Concomitant]
     Active Substance: AMLODIPINE BESYLATE
     Route: 048
  3. DIETARY SUPPLEMENT\HERBALS\INDIAN FRANKINCENSE [Concomitant]
     Active Substance: DIETARY SUPPLEMENT\HERBALS\INDIAN FRANKINCENSE
     Dosage: FREQUENCY TEXT:DAILY
     Route: 050
  4. METFORMIN HYDROCHLORIDE [Concomitant]
     Active Substance: METFORMIN HYDROCHLORIDE
     Dosage: 500MG/5ML
     Route: 048
  5. METOPROLOL TARTRATE [Concomitant]
     Active Substance: METOPROLOL TARTRATE
     Route: 048
  6. MODERNA COVID-19 VACCINE [Concomitant]
     Active Substance: ELASOMERAN
     Route: 030
  7. TELMISARTAN AND AMLODIPINE [Concomitant]
     Active Substance: AMLODIPINE BESYLATE\TELMISARTAN
     Dosage: 80-5 MG? FREQUENCY TEXT:DAILY
     Route: 048
  8. HERBALS\TURMERIC [Concomitant]
     Active Substance: HERBALS\TURMERIC
     Dosage: FREQUENCY TEXT:DAILY
     Route: 048
  9. ULORIC [Concomitant]
     Active Substance: FEBUXOSTAT
     Dosage: FREQUENCY TEXT:DAILY
     Route: 048
  10. VITAMIN D NOS [Concomitant]
     Active Substance: CHOLECALCIFEROL\ERGOCALCIFEROL
     Dosage: FREQUENCY TEXT:DAILY
     Route: 048

REACTIONS (1)
  - Overweight [Unknown]
